FAERS Safety Report 12835299 (Version 2)
Quarter: 2017Q1

REPORT INFORMATION
  Report Type: Spontaneous
  Country: FR (occurrence: FR)
  Receive Date: 20161011
  Receipt Date: 20170112
  Transmission Date: 20170428
  Serious: Yes (Hospitalization)
  Sender: FDA-Public Use
  Company Number: FR-ROCHE-1838974

PATIENT
  Age: 31 Year
  Sex: Female
  Weight: 73.5 kg

DRUGS (8)
  1. DEPAKOTE [Suspect]
     Active Substance: DIVALPROEX SODIUM
     Dosage: 500 MG 1 TABLET?TWICE A DAY MORNING AND EVENING.
     Route: 048
     Dates: start: 20160817, end: 20160830
  2. DEPAKOTE [Suspect]
     Active Substance: DIVALPROEX SODIUM
     Indication: PRODUCT USED FOR UNKNOWN INDICATION
     Dosage: 1 TABLET OF 250 MG MORNING AND 1 TABLET OF 500 MG EVENING
     Route: 048
     Dates: start: 20160816, end: 20160830
  3. HYDROXYZINE [Suspect]
     Active Substance: HYDROXYZINE HYDROCHLORIDE
     Indication: PRODUCT USED FOR UNKNOWN INDICATION
     Dosage: VARIABLE POSOLOGY
     Route: 048
     Dates: start: 20160816, end: 20160830
  4. ANDROCUR [Concomitant]
     Active Substance: CYPROTERONE ACETATE
     Dosage: INCLUDED TREATMENT FOR 3 MONTHS AT LEAST. 1 TABLET EVENING VIA ORAL ROUTE
     Route: 048
  5. VALIUM [Suspect]
     Active Substance: DIAZEPAM
     Indication: PRODUCT USED FOR UNKNOWN INDICATION
     Dosage: VARIABLE POSOLOGY
     Route: 048
     Dates: start: 20160816, end: 20160830
  6. RIVOTRIL [Suspect]
     Active Substance: CLONAZEPAM
     Indication: GENERALISED TONIC-CLONIC SEIZURE
     Route: 030
     Dates: start: 20160817, end: 20160817
  7. VALIUM [Suspect]
     Active Substance: DIAZEPAM
     Indication: GENERALISED TONIC-CLONIC SEIZURE
     Route: 030
     Dates: start: 20160817, end: 20160817
  8. PROVAMES [Concomitant]
     Active Substance: ESTRADIOL
     Route: 048
     Dates: start: 20160704

REACTIONS (5)
  - Rash maculo-papular [Recovered/Resolved]
  - Blood pressure decreased [Recovered/Resolved]
  - Pyrexia [Recovered/Resolved]
  - Rash pruritic [Recovered/Resolved]
  - Injection site plaque [Recovered/Resolved]

NARRATIVE: CASE EVENT DATE: 20160817
